FAERS Safety Report 9503618 (Version 1)
Quarter: 2013Q1

REPORT INFORMATION
  Report Type: Spontaneous
  Country: US (occurrence: None)
  Receive Date: 20130130
  Receipt Date: 20130130
  Transmission Date: 20140127
  Serious: Yes (Other)
  Sender: FDA-Public Use
  Company Number: US201211003240

PATIENT
  Age: 58 Year
  Sex: Female

DRUGS (1)
  1. BYDUREON [Suspect]
     Dosage: 2 MG, WEEKLY (1/W), SUBCUTANEOUS
     Dates: start: 201208

REACTIONS (4)
  - Blood glucose decreased [None]
  - Blood glucose increased [None]
  - Injection site nodule [None]
  - Underdose [None]
